FAERS Safety Report 7407618-2 (Version None)
Quarter: 2011Q2

REPORT INFORMATION
  Report Type: 
  Country: None (occurrence: None)
  Receive Date: 20110404
  Receipt Date: 20110321
  Transmission Date: 20111010
  Serious: Yes (Hospitalization, Other)
  Sender: FDA-Public Use
  Company Number: DSM-2011-00336

PATIENT
  Sex: Female

DRUGS (2)
  1. RIFINAH (ISONIAZID, RIFAMPICIN) (ISONIAZID, RIFAMPICIN) [Concomitant]
  2. AXELER (OLMESARTAN MEDOXOMIL, AMLODIPINE BESILATE (TABLET) (OLMESARTAN [Suspect]
     Indication: PRODUCT USED FOR UNKNOWN INDICATION
     Dosage: ORAL
     Route: 048

REACTIONS (7)
  - OLIGOHYDRAMNIOS [None]
  - CAESAREAN SECTION [None]
  - HYPOTENSION [None]
  - ANURIA [None]
  - MATERNAL DRUGS AFFECTING FOETUS [None]
  - RENAL FAILURE NEONATAL [None]
  - FOETAL GROWTH RESTRICTION [None]
